FAERS Safety Report 9832256 (Version 3)
Quarter: 2014Q1

REPORT INFORMATION
  Report Type: Report from Study
  Country: AU (occurrence: AU)
  Receive Date: 20140121
  Receipt Date: 20140224
  Transmission Date: 20141002
  Serious: Yes (Death, Other)
  Sender: FDA-Public Use
  Company Number: PHHY2014AU005638

PATIENT
  Age: 87 Year
  Sex: Female

DRUGS (2)
  1. ACLASTA [Suspect]
     Dosage: 5 MG, UNK
     Route: 042
     Dates: start: 20130213
  2. ANTIARRHYTHMIC AGENTS [Concomitant]
     Dosage: UNK UKN, UNK

REACTIONS (2)
  - Death [Fatal]
  - Atrial fibrillation [Unknown]
